FAERS Safety Report 5336643-0 (Version None)
Quarter: 2007Q2

REPORT INFORMATION
  Report Type: 
  Country: None (occurrence: None)
  Receive Date: 20070529
  Receipt Date: 20070522
  Transmission Date: 20071010
  Serious: Yes (Other)
  Sender: FDA-Public Use
  Company Number: JP-AVENTIS-200711316JP

PATIENT
  Age: 63 Year
  Sex: Male

DRUGS (1)
  1. LASIX [Suspect]
     Route: 048

REACTIONS (1)
  - PEMPHIGOID [None]
